FAERS Safety Report 17014626 (Version 2)
Quarter: 2020Q1

REPORT INFORMATION
  Report Type: Spontaneous
  Country: PT (occurrence: PT)
  Receive Date: 20191111
  Receipt Date: 20200210
  Transmission Date: 20200409
  Serious: Yes (Other)
  Sender: FDA-Public Use
  Company Number: PT-SA-2019SA309873

PATIENT
  Age: 35 Year
  Sex: Female

DRUGS (6)
  1. ALPRAZOLAM. [Concomitant]
     Active Substance: ALPRAZOLAM
  2. AMITRIPTYLINE [Concomitant]
     Active Substance: AMITRIPTYLINE
  3. QUETIAPINE. [Concomitant]
     Active Substance: QUETIAPINE
  4. PREGABALIN. [Concomitant]
     Active Substance: PREGABALIN
  5. VENLAFAXINE [Concomitant]
     Active Substance: VENLAFAXINE HYDROCHLORIDE
  6. AUBAGIO [Suspect]
     Active Substance: TERIFLUNOMIDE
     Indication: RELAPSING-REMITTING MULTIPLE SCLEROSIS
     Dosage: 14MG, 1X DAY AT 8PM
     Route: 048
     Dates: start: 20190522, end: 20191022

REACTIONS (3)
  - Rash [Unknown]
  - Rash papular [Unknown]
  - Eczema nummular [Unknown]

NARRATIVE: CASE EVENT DATE: 20190916
